FAERS Safety Report 23138111 (Version 1)
Quarter: 2023Q4

REPORT INFORMATION
  Report Type: Spontaneous
  Country: US (occurrence: None)
  Receive Date: 20231101
  Receipt Date: 20231101
  Transmission Date: 20240110
  Serious: No
  Sender: FDA-Public Use
  Company Number: None

PATIENT
  Age: 63 Year
  Sex: Male
  Weight: 126 kg

DRUGS (3)
  1. EQUATE EYE DROPS DRY EYE RELIEF [Suspect]
     Active Substance: GLYCERIN\HYPROMELLOSES\POLYETHYLENE GLYCOL 400
     Indication: Eye irritation
     Dosage: OTHER QUANTITY : 2 DROP(S);?FREQUENCY : AS NEEDED;?
     Route: 047
  2. FISH OIL [Concomitant]
     Active Substance: FISH OIL
  3. multi-vitamins [Concomitant]

REACTIONS (2)
  - Instillation site irritation [None]
  - Foreign body sensation in eyes [None]

NARRATIVE: CASE EVENT DATE: 20230701
